FAERS Safety Report 12649898 (Version 2)
Quarter: 2016Q3

REPORT INFORMATION
  Report Type: Report from Study
  Country: US (occurrence: US)
  Receive Date: 20160812
  Receipt Date: 20160827
  Transmission Date: 20161109
  Serious: Yes (Hospitalization, Other)
  Sender: FDA-Public Use
  Company Number: US-ASTRAZENECA-2016SE85122

PATIENT
  Age: 21821 Day
  Sex: Male
  Weight: 49.2 kg

DRUGS (2)
  1. MEDI4736 [Suspect]
     Active Substance: DURVALUMAB
     Indication: NON-SMALL CELL LUNG CANCER
     Route: 042
     Dates: start: 20160720, end: 20160803
  2. OLAPARIB [Suspect]
     Active Substance: OLAPARIB
     Indication: NON-SMALL CELL LUNG CANCER
     Route: 048
     Dates: start: 20160720, end: 20160803

REACTIONS (1)
  - Pneumonitis [Unknown]

NARRATIVE: CASE EVENT DATE: 20160803
